FAERS Safety Report 8470594-8 (Version None)
Quarter: 2012Q2

REPORT INFORMATION
  Report Type: 
  Country: None (occurrence: None)
  Receive Date: 20120627
  Receipt Date: 20120620
  Transmission Date: 20120825
  Serious: Yes (Other)
  Sender: FDA-Public Use
  Company Number: PHHY2011CA88913

PATIENT
  Sex: Female

DRUGS (6)
  1. GILENYA [Suspect]
     Dosage: 0.5 MG, DAILY
     Route: 048
     Dates: start: 20120115
  2. ZOPICLONE [Concomitant]
     Dosage: UNK UKN, PRN
  3. CLONAZEPAM [Concomitant]
     Dosage: UNK UKN, UNK
  4. GILENYA [Suspect]
     Dosage: 0.5 MG, QD
     Route: 048
     Dates: start: 20120116
  5. GILENYA [Suspect]
     Dosage: 0.5 MG, QOD
     Route: 048
  6. GILENYA [Suspect]
     Indication: RELAPSING-REMITTING MULTIPLE SCLEROSIS
     Dosage: 0.5 MG, DAILY
     Route: 048
     Dates: start: 20111005, end: 20111216

REACTIONS (23)
  - LEUKOPENIA [None]
  - NEUTROPENIA [None]
  - HEADACHE [None]
  - CENTRAL NERVOUS SYSTEM LESION [None]
  - CONJUNCTIVITIS [None]
  - ERYTHEMA [None]
  - SINUS HEADACHE [None]
  - FATIGUE [None]
  - DYSPNOEA [None]
  - LYMPHOPENIA [None]
  - AMNESIA [None]
  - PALPITATIONS [None]
  - INAPPROPRIATE SCHEDULE OF DRUG ADMINISTRATION [None]
  - DIZZINESS [None]
  - BACK PAIN [None]
  - SPEECH DISORDER [None]
  - RHINORRHOEA [None]
  - LACRIMATION INCREASED [None]
  - NAUSEA [None]
  - ABDOMINAL PAIN [None]
  - PAIN [None]
  - CONSTIPATION [None]
  - NASAL CONGESTION [None]
